FAERS Safety Report 7366119-0 (Version None)
Quarter: 2011Q1

REPORT INFORMATION
  Report Type: 
  Country: None (occurrence: None)
  Receive Date: 20110309
  Receipt Date: 20110225
  Transmission Date: 20110831
  Serious: Yes (Hospitalization, Other)
  Sender: FDA-Public Use
  Company Number: JP1-P-014040

PATIENT
  Age: 74 Year
  Sex: Female
  Weight: 85.2762 kg

DRUGS (6)
  1. CHOLECALCIFEROL [Concomitant]
  2. VENLAFAXINE HCL [Concomitant]
  3. XYREM [Suspect]
     Indication: FIBROMYALGIA
     Dosage: 9 GM (4.5 GM, 2 IN 1 D), ORAL
     Route: 048
     Dates: start: 20040201, end: 20110212
  4. GABAPENTIN [Concomitant]
  5. ZOLPIDEM TARTRATE [Concomitant]
  6. LEVOTHYROXINE SODIUM [Concomitant]

REACTIONS (3)
  - CHEST PAIN [None]
  - FLATULENCE [None]
  - MYOCARDIAL INFARCTION [None]
